FAERS Safety Report 8849793 (Version 1)
Quarter: 2012Q4

REPORT INFORMATION
  Report Type: Report from Study
  Country: RU (occurrence: RU)
  Receive Date: 20121019
  Receipt Date: 20121019
  Transmission Date: 20130627
  Serious: Yes (Death)
  Sender: FDA-Public Use
  Company Number: RU-CELGENEUS-251-CCAZA-12102049

PATIENT
  Age: 71 Year
  Sex: Female
  Weight: 65 kg

DRUGS (2)
  1. AZACITIDINE INJECTABLE [Suspect]
     Indication: ACUTE MYELOID LEUKEMIA
     Dosage: 75 milligram/sq. meter
     Route: 058
     Dates: start: 20120913, end: 20120919
  2. AZACITIDINE INJECTABLE [Suspect]
     Dosage: 75 milligram/sq. meter
     Route: 058
     Dates: start: 20121011, end: 20121014

REACTIONS (1)
  - Cardiovascular insufficiency [Fatal]
